FAERS Safety Report 11941573 (Version 2)
Quarter: 2016Q1

REPORT INFORMATION
  Report Type: Spontaneous
  Country: AR (occurrence: AR)
  Receive Date: 20160123
  Receipt Date: 20160129
  Transmission Date: 20160526
  Serious: Yes (Other)
  Sender: FDA-Public Use
  Company Number: AR-AMGEN-ARGSP2014058732

PATIENT
  Age: 71 Year
  Sex: Male

DRUGS (5)
  1. ENBREL [Suspect]
     Active Substance: ETANERCEPT
     Dosage: 50 MG, WEEKLY
     Route: 065
     Dates: start: 20140716, end: 20151217
  2. METFORMIN [Concomitant]
     Active Substance: METFORMIN HYDROCHLORIDE
     Dosage: UNK
  3. AMLOC                              /00972402/ [Concomitant]
     Dosage: UNK
  4. ENBREL [Suspect]
     Active Substance: ETANERCEPT
     Indication: PSORIATIC ARTHROPATHY
     Dosage: 50 MG, WEEKLY
     Route: 065
     Dates: start: 20081204, end: 201406
  5. RIVOTRIL [Concomitant]
     Active Substance: CLONAZEPAM
     Dosage: UNK

REACTIONS (4)
  - Psoriatic arthropathy [Recovered/Resolved]
  - Condition aggravated [Recovered/Resolved]
  - Psoriasis [Recovered/Resolved]
  - Cholelithiasis [Recovering/Resolving]

NARRATIVE: CASE EVENT DATE: 201407
